FAERS Safety Report 21406177 (Version 1)
Quarter: 2022Q4

REPORT INFORMATION
  Report Type: Spontaneous
  Country: US (occurrence: None)
  Receive Date: 20221003
  Receipt Date: 20221003
  Transmission Date: 20230113
  Serious: Yes (Hospitalization)
  Sender: FDA-Public Use
  Company Number: None

PATIENT
  Sex: Female

DRUGS (16)
  1. TACROLIMUS [Suspect]
     Active Substance: TACROLIMUS
     Indication: Idiopathic pulmonary fibrosis
     Dosage: 1 CAPSULE BY MOUTH Q12H
     Route: 048
     Dates: start: 20220629
  2. aripiprazole tab [Concomitant]
  3. BENZONATATE CAP [Concomitant]
  4. EFFEXOR XR [Concomitant]
     Active Substance: VENLAFAXINE HYDROCHLORIDE
  5. FLUOXETINE CAP [Concomitant]
  6. MYCOPHENOLIC ACID [Concomitant]
     Active Substance: MYCOPHENOLIC ACID
  7. OFEV CAP [Concomitant]
  8. OFEV [Concomitant]
     Active Substance: NINTEDANIB
  9. PREDNISONE [Concomitant]
     Active Substance: PREDNISONE
  10. SIMVASTATIN [Concomitant]
     Active Substance: SIMVASTATIN
  11. SINGULAIR TAB [Concomitant]
  12. TELMISA/HCTZ [Concomitant]
  13. TESSALON PER CAP [Concomitant]
  14. TRELEGY AER ELLIPTA [Concomitant]
  15. VENLAFAXINE CAP [Concomitant]
  16. ZOFRAN [Concomitant]
     Active Substance: ONDANSETRON HYDROCHLORIDE

REACTIONS (7)
  - Dyspnoea [None]
  - Pulmonary pain [None]
  - Cough [None]
  - Dyspnoea [None]
  - Post procedural haemorrhage [None]
  - Red blood cell count decreased [None]
  - Therapy interrupted [None]
